FAERS Safety Report 11837394 (Version 2)
Quarter: 2015Q4

REPORT INFORMATION
  Report Type: Spontaneous
  Country: NL (occurrence: NL)
  Receive Date: 20151215
  Receipt Date: 20151222
  Transmission Date: 20160305
  Serious: No
  Sender: FDA-Public Use
  Company Number: NL-BAYER-2015-485933

PATIENT
  Age: 76 Year
  Sex: Male
  Weight: 86 kg

DRUGS (7)
  1. NEXIUM [Concomitant]
     Active Substance: ESOMEPRAZOLE MAGNESIUM
     Dosage: 20 MG, BID
     Route: 048
     Dates: start: 2009
  2. NIFEDIPINE (RETARD) [Suspect]
     Active Substance: NIFEDIPINE
     Indication: HYPERTENSION
     Dosage: 1 DF, UNK (RECEIVED TO LOWER BLOOD PRESSURE RAPIDLY IF NECESSARY)
     Route: 048
     Dates: start: 20151124, end: 20151130
  3. MONO-CEDOCARD [Concomitant]
     Dosage: 25 MG, QD
     Route: 048
     Dates: start: 2012
  4. COLECALCIFEROL [Concomitant]
     Active Substance: CHOLECALCIFEROL
     Dosage: 800 IU, QD
     Route: 048
     Dates: start: 20150601
  5. ASCAL CARDIO [Concomitant]
     Active Substance: CARBASALATE
     Dosage: 100 MG, QD
     Route: 048
     Dates: start: 2012
  6. LIPITOR [Concomitant]
     Active Substance: ATORVASTATIN CALCIUM
     Dosage: 1 DF, UNK
     Route: 048
     Dates: start: 2012
  7. VALSARTAN. [Concomitant]
     Active Substance: VALSARTAN
     Dosage: 160 MG, QD
     Route: 048
     Dates: start: 2012

REACTIONS (1)
  - Tremor [Recovering/Resolving]

NARRATIVE: CASE EVENT DATE: 20151130
